FAERS Safety Report 7919368-4 (Version None)
Quarter: 2011Q4

REPORT INFORMATION
  Report Type: 
  Country: None (occurrence: None)
  Receive Date: 20111117
  Receipt Date: 20111109
  Transmission Date: 20120403
  Serious: Yes (Other)
  Sender: FDA-Public Use
  Company Number: US-JNJFOC-20111012516

PATIENT
  Sex: Female
  Weight: 116.12 kg

DRUGS (3)
  1. CYMBALTA [Concomitant]
     Indication: DEPRESSION
     Dosage: ONCE A DAY
     Route: 048
  2. NUCYNTA [Suspect]
     Indication: ARTHRALGIA
     Dosage: 50 MG DAILY
     Route: 048
  3. NUCYNTA [Suspect]
     Dosage: 50 MG, 3 TIMES A DAY
     Route: 048
     Dates: start: 20110818, end: 20110101

REACTIONS (1)
  - DEPRESSION [None]
